FAERS Safety Report 12607102 (Version 3)
Quarter: 2016Q3

REPORT INFORMATION
  Report Type: Report from Study
  Country: US (occurrence: US)
  Receive Date: 20160729
  Receipt Date: 20160823
  Transmission Date: 20161109
  Serious: Yes (Hospitalization)
  Sender: FDA-Public Use
  Company Number: US-GILEAD-2016-0225040

PATIENT
  Age: 66 Year
  Sex: Female
  Weight: 58.96 kg

DRUGS (2)
  1. PREDNISONE. [Concomitant]
     Active Substance: PREDNISONE
  2. AZTREONAM LYSINE [Suspect]
     Active Substance: AZTREONAM LYSINE
     Indication: BRONCHIECTASIS
     Dosage: 75 MG, UNK
     Route: 055

REACTIONS (9)
  - Asthenia [Recovered/Resolved]
  - Muscular weakness [Unknown]
  - Nausea [Unknown]
  - Dyspnoea [Unknown]
  - Vertigo [Unknown]
  - Myalgia [Recovered/Resolved]
  - Fatigue [Unknown]
  - Dizziness [Unknown]
  - Off label use [Unknown]
